FAERS Safety Report 7548162-1 (Version None)
Quarter: 2011Q2

REPORT INFORMATION
  Report Type: 
  Country: None (occurrence: None)
  Receive Date: 20110608
  Receipt Date: 20110530
  Transmission Date: 20111010
  Serious: Yes (Other)
  Sender: FDA-Public Use
  Company Number: LEO-2011-00374

PATIENT
  Sex: Male

DRUGS (2)
  1. INNOHEP [Suspect]
     Indication: PRODUCT USED FOR UNKNOWN INDICATION
     Dosage: UNK (3500 IU, 1 D), SUBCUTANEOUS
     Route: 058
     Dates: start: 20110401
  2. ACETAMINOPHEN [Concomitant]

REACTIONS (2)
  - THROMBOCYTOSIS [None]
  - OFF LABEL USE [None]
